FAERS Safety Report 5632449-3 (Version None)
Quarter: 2008Q1

REPORT INFORMATION
  Report Type: 
  Country: None (occurrence: None)
  Receive Date: 20080220
  Receipt Date: 20080215
  Transmission Date: 20080703
  Serious: No
  Sender: FDA-Public Use
  Company Number: US-BOEHRINGER INGELHEIM GMBH, GERMANY-2007-BP-23522BP

PATIENT
  Age: 62 Year
  Sex: Female
  Weight: 78 kg

DRUGS (7)
  1. MIRAPEX [Suspect]
     Indication: RESTLESS LEGS SYNDROME
     Route: 048
     Dates: start: 20071018, end: 20071025
  2. MIRAPEX [Suspect]
     Route: 048
     Dates: start: 20071025, end: 20071030
  3. ALBUTEROL [Concomitant]
     Indication: ASTHMA
  4. ADVAIR DISKUS 100/50 [Concomitant]
     Indication: ASTHMA
  5. MULTIPLE VITAMIN [Concomitant]
  6. GLUCOSAMINE/CHONDROITIN [Concomitant]
  7. LITHIUM CARBONATE [Concomitant]

REACTIONS (5)
  - DRUG INEFFECTIVE [None]
  - HEADACHE [None]
  - INSOMNIA [None]
  - PRURITUS [None]
  - SOMNOLENCE [None]
